FAERS Safety Report 4334732-0 (Version None)
Quarter: 2004Q2

REPORT INFORMATION
  Report Type: 
  Country: None (occurrence: None)
  Receive Date: 20040405
  Receipt Date: 20040323
  Transmission Date: 20050107
  Serious: Yes (Other)
  Sender: FDA-Public Use
  Company Number: US-JNJFOC-20040104105

PATIENT
  Age: 77 Year
  Sex: Male
  Weight: 84.5 kg

DRUGS (13)
  1. REMICADE [Suspect]
     Indication: RHEUMATOID ARTHRITIS
     Dosage: 300 MG, 1 IN 8 WEEK, INTRAVENOUS
     Route: 042
     Dates: start: 20020701, end: 20031120
  2. PREDNISONE [Concomitant]
  3. MTX (METHOTREXATE AOSIUM) [Concomitant]
  4. FOLIC ACID [Concomitant]
  5. CENTRUM [Concomitant]
  6. PRINIVIL [Concomitant]
  7. FOSAMAX [Concomitant]
  8. LUTEIN (PROGESTERONE) [Concomitant]
  9. GARLIC (GARLIC) TABLETS [Concomitant]
  10. METAMUCIL-2 [Concomitant]
  11. APAP (PARACETAMOL) [Concomitant]
  12. VITAMIN E [Concomitant]
  13. CALCIUM [Concomitant]

REACTIONS (2)
  - FUNGAL INFECTION [None]
  - GRANULOMA [None]
